FAERS Safety Report 18424787 (Version 1)
Quarter: 2020Q4

REPORT INFORMATION
  Report Type: Spontaneous
  Country: ES (occurrence: ES)
  Receive Date: 20201026
  Receipt Date: 20201026
  Transmission Date: 20210114
  Serious: Yes (Hospitalization)
  Sender: FDA-Public Use
  Company Number: ES-LUPIN PHARMACEUTICALS INC.-2020-07671

PATIENT
  Age: 53 Year
  Sex: Male

DRUGS (2)
  1. MOXIFLOXACIN HYDROCHLORIDE. [Suspect]
     Active Substance: MOXIFLOXACIN HYDROCHLORIDE
     Indication: ENDOPHTHALMITIS
     Dosage: INTRACAMERAL MOXIFLOXACIN (0.5 MG/ 0.1 ML) ADMINISTERED IN THE ANTERIOR CHAMBER, INJECTION
  2. MOXIFLOXACIN HYDROCHLORIDE. [Suspect]
     Active Substance: MOXIFLOXACIN HYDROCHLORIDE
     Indication: PROPHYLAXIS

REACTIONS (1)
  - Iris transillumination defect [Recovered/Resolved]
